FAERS Safety Report 15754686 (Version 1)
Quarter: 2018Q4

REPORT INFORMATION
  Report Type: Spontaneous
  Country: US (occurrence: US)
  Receive Date: 20181224
  Receipt Date: 20181224
  Transmission Date: 20190205
  Serious: No
  Sender: FDA-Public Use
  Company Number: US-LAURUS LABS LIMITED-201800317

PATIENT
  Sex: Female

DRUGS (1)
  1. METFORMIN [Suspect]
     Active Substance: METFORMIN HYDROCHLORIDE
     Indication: DIABETES MELLITUS
     Dosage: 500 TO 2000 MG A DAY
     Route: 065

REACTIONS (2)
  - Gastrointestinal disorder [Unknown]
  - Abdominal pain upper [Unknown]
